FAERS Safety Report 6674764-0 (Version None)
Quarter: 2010Q2

REPORT INFORMATION
  Report Type: 
  Country: None (occurrence: None)
  Receive Date: 20100409
  Receipt Date: 20100329
  Transmission Date: 20101027
  Serious: Yes (Other)
  Sender: FDA-Public Use
  Company Number: BR-PFIZER INC-2009288761

PATIENT
  Age: 67 Year
  Sex: Female
  Weight: 47 kg

DRUGS (5)
  1. XALATAN [Suspect]
     Indication: ANGLE CLOSURE GLAUCOMA
     Dosage: 1.5 UG, 1X/DAY, AT NIGHT
     Route: 047
  2. LIPITOR [Concomitant]
     Dosage: UNK
     Dates: start: 19990101
  3. COMBIGAN [Concomitant]
     Dosage: EVERY 12 HOURS
  4. AZOPT [Concomitant]
     Dosage: UNK
  5. PRED MILD [Concomitant]
     Dosage: UNK
     Dates: start: 20050101

REACTIONS (4)
  - CHOROIDAL DETACHMENT [None]
  - CORNEAL TRANSPLANT [None]
  - HYPOTONIA [None]
  - UVEITIS [None]
